FAERS Safety Report 7347539-7 (Version None)
Quarter: 2011Q1

REPORT INFORMATION
  Report Type: 
  Country: None (occurrence: None)
  Receive Date: 20110311
  Receipt Date: 20110303
  Transmission Date: 20110831
  Serious: Yes (Hospitalization)
  Sender: FDA-Public Use
  Company Number: US-BRISTOL-MYERS SQUIBB COMPANY-15586704

PATIENT
  Age: 44 Year
  Sex: Female
  Weight: 127 kg

DRUGS (5)
  1. ATENOLOL [Suspect]
     Dosage: STARTED 2 YEARS AGO
  2. AVALIDE [Suspect]
     Dosage: 1 DF=300/12.5MG STARTED 2 YEARS AGO
     Dates: start: 20090101
  3. PLAQUENIL [Suspect]
     Dosage: STARTED 2 YEARS AGO
  4. PREVACID [Suspect]
     Dosage: STARTED 2 YEARS AGO
  5. FENOFIBRATE [Suspect]
     Dosage: STARTED 2 YEARS AGO

REACTIONS (3)
  - DILATATION VENTRICULAR [None]
  - BLOOD PRESSURE INADEQUATELY CONTROLLED [None]
  - MEDICATION ERROR [None]
